APPROVED DRUG PRODUCT: VALSARTAN AND HYDROCHLOROTHIAZIDE
Active Ingredient: HYDROCHLOROTHIAZIDE; VALSARTAN
Strength: 25MG;160MG
Dosage Form/Route: TABLET;ORAL
Application: A204382 | Product #003 | TE Code: AB
Applicant: AMNEAL PHARMACEUTICALS OF NEW YORK LLC
Approved: Aug 11, 2023 | RLD: No | RS: No | Type: RX